FAERS Safety Report 9372463 (Version 1)
Quarter: 2013Q2

REPORT INFORMATION
  Report Type: Report from Study
  Country: US (occurrence: US)
  Receive Date: 20130627
  Receipt Date: 20130627
  Transmission Date: 20140414
  Serious: Yes (Other)
  Sender: FDA-Public Use
  Company Number: US-MYLANLABS-2012S1025098

PATIENT
  Age: 65 Year
  Sex: Female

DRUGS (8)
  1. CLOZAPINE TABLETS [Suspect]
     Indication: DEPRESSION
     Route: 048
     Dates: start: 20111222, end: 2012
  2. TEGRETOL [Concomitant]
     Dates: start: 20120621, end: 20121018
  3. CENTRUM [Concomitant]
  4. TYLENOL [Concomitant]
  5. LOPID [Concomitant]
  6. LORATADINE [Concomitant]
     Dates: start: 20120830, end: 20121018
  7. POTASSIUM [Concomitant]
  8. ASA [Concomitant]

REACTIONS (1)
  - Granulocytopenia [Not Recovered/Not Resolved]
